FAERS Safety Report 5116621-7 (Version None)
Quarter: 2006Q3

REPORT INFORMATION
  Report Type: 
  Country: None (occurrence: None)
  Receive Date: 20060920
  Receipt Date: 20060904
  Transmission Date: 20061208
  Serious: Yes (Other)
  Sender: FDA-Public Use
  Company Number: 2006BH013241

PATIENT
  Sex: Male

DRUGS (9)
  1. ARALAST [Suspect]
     Indication: ALPHA-1 ANTI-TRYPSIN DEFICIENCY
     Dosage: EVERY WEEK;IV
     Route: 042
     Dates: start: 20060818, end: 20060830
  2. METFORMIN HCL [Concomitant]
  3. ACTOS [Concomitant]
  4. ALTASE [Concomitant]
  5. PREVACID [Concomitant]
  6. ADVAIR DISKUS 100/50 [Concomitant]
  7. ALBUTEROL [Concomitant]
  8. AZMACORT [Concomitant]
  9. COMBIVENT [Concomitant]

REACTIONS (6)
  - BLOOD PRESSURE INCREASED [None]
  - DIZZINESS [None]
  - HEADACHE [None]
  - HOT FLUSH [None]
  - PRURITUS [None]
  - VISION BLURRED [None]
